FAERS Safety Report 7241540 (Version 3)
Quarter: 2014Q3

REPORT INFORMATION
  Report Type: Spontaneous
  Country: IT (occurrence: None)
  Receive Date: 20091229
  Receipt Date: 20140822
  Transmission Date: 20150326
  Serious: Yes (Hospitalization)
  Sender: FDA-Public Use
  Company Number: 453385

PATIENT
  Age: 41 Year
  Sex: Female

DRUGS (7)
  1. METRONDIAZOLE 500 MG [Concomitant]
     Active Substance: METRONIDAZOLE
  2. PHENYTOIN SODIUM. [Concomitant]
     Active Substance: PHENYTOIN SODIUM
  3. ENOXAPARIN [Concomitant]
     Active Substance: ENOXAPARIN
  4. DEXAMETHASONE. [Concomitant]
     Active Substance: DEXAMETHASONE
  5. MEROPENEM. [Concomitant]
     Active Substance: MEROPENEM
  6. VANCOMYCIN [Suspect]
     Active Substance: VANCOMYCIN
     Indication: PRODUCT USED FOR UNKNOWN INDICATION
     Dosage: 2 MG, INTRAVENOUS
     Route: 042
     Dates: start: 20091114, end: 20091120
  7. FLUCONAZOLE. [Concomitant]
     Active Substance: FLUCONAZOLE

REACTIONS (1)
  - Rash maculo-papular [None]

NARRATIVE: CASE EVENT DATE: 20091120
